FAERS Safety Report 5537168-X (Version None)
Quarter: 2007Q4

REPORT INFORMATION
  Report Type: 
  Country: None (occurrence: None)
  Receive Date: 20071205
  Receipt Date: 20071205
  Transmission Date: 20080405
  Serious: Yes (Life-Threatening, Disabling, Other)
  Sender: FDA-Public Use
  Company Number: None

PATIENT
  Age: 49 Year
  Sex: Female
  Weight: 54.4316 kg

DRUGS (1)
  1. CHANTIX [Suspect]
     Indication: SMOKING CESSATION THERAPY
     Dosage: 0.5MG  1TABQDX3, 1 BIDX4D THEN 1MGBID X 11WK  PO
     Route: 048
     Dates: start: 20071012, end: 20071120

REACTIONS (5)
  - AGITATION [None]
  - DEPRESSION [None]
  - IRRITABILITY [None]
  - PSYCHOTIC DISORDER [None]
  - SUICIDAL BEHAVIOUR [None]
